FAERS Safety Report 5588679-2 (Version None)
Quarter: 2008Q1

REPORT INFORMATION
  Report Type: 
  Country: None (occurrence: None)
  Receive Date: 20080111
  Receipt Date: 20080110
  Transmission Date: 20080703
  Serious: Yes (Hospitalization, Disabling, Other)
  Sender: FDA-Public Use
  Company Number: A0694515A

PATIENT
  Age: 75 Year
  Sex: Male

DRUGS (2)
  1. REQUIP [Suspect]
     Indication: RESTLESS LEGS SYNDROME
     Route: 048
     Dates: start: 20071012, end: 20071016
  2. STALEVO 100 [Concomitant]

REACTIONS (3)
  - ABASIA [None]
  - MOTOR DYSFUNCTION [None]
  - PARKINSON'S DISEASE [None]
